FAERS Safety Report 7660083-2 (Version None)
Quarter: 2011Q3

REPORT INFORMATION
  Report Type: 
  Country: None (occurrence: None)
  Receive Date: 20110805
  Receipt Date: 20110725
  Transmission Date: 20111222
  Serious: Yes (Other)
  Sender: FDA-Public Use
  Company Number: PHHY2011GR69851

PATIENT
  Sex: Male

DRUGS (7)
  1. IRON SUPPLEMENTS [Concomitant]
     Dosage: UNK UKN, UNK
     Route: 064
  2. HEPARIN [Concomitant]
     Dosage: UNK UKN, UNK
     Route: 064
  3. PROGESTERONE [Concomitant]
     Dosage: MOTHERS DOSE: 400 MG, DAILY
     Route: 064
  4. ESTRADIOL [Suspect]
     Indication: HORMONE REPLACEMENT THERAPY
     Dosage: MOTHERS DOSE: 4 MG, UNK
     Route: 064
  5. PROGESTERONE [Concomitant]
     Dosage: 800 MG, UNK
  6. FOLIC ACID [Concomitant]
     Dosage: UNK UKN, UNK
     Route: 064
  7. SALICYLIC ACID [Concomitant]
     Dosage: UNK UKN, UNK
     Route: 064

REACTIONS (2)
  - FOETAL GROWTH RESTRICTION [None]
  - FOETAL HYPOKINESIA [None]
